FAERS Safety Report 9985817 (Version 1)
Quarter: 2014Q1

REPORT INFORMATION
  Report Type: Report from Study
  Country: US (occurrence: US)
  Receive Date: 20140307
  Receipt Date: 20140307
  Transmission Date: 20141002
  Serious: No
  Sender: FDA-Public Use
  Company Number: US-ABBVIE-13P-163-1086120-00

PATIENT
  Age: 22 Year
  Sex: Female

DRUGS (3)
  1. HUMIRA [Suspect]
     Indication: CROHN^S DISEASE
     Dates: start: 201202
  2. PENTASA [Concomitant]
     Indication: CROHN^S DISEASE
     Dosage: 500 MG DAILY
  3. IRON [Concomitant]
     Indication: ANAEMIA
     Dosage: TWO DAILY

REACTIONS (3)
  - Incorrect product storage [Unknown]
  - Device malfunction [Unknown]
  - Incorrect dose administered [Unknown]
